FAERS Safety Report 14973020 (Version 1)
Quarter: 2018Q2

REPORT INFORMATION
  Report Type: Spontaneous
  Country: US (occurrence: US)
  Receive Date: 20180514
  Receipt Date: 20180514
  Transmission Date: 20180711
  Serious: No
  Sender: FDA-Public Use
  Company Number: None

PATIENT
  Age: 57 Year
  Sex: Female

DRUGS (1)
  1. CAPECITABINE 500MG WEST-WARD [Suspect]
     Active Substance: CAPECITABINE
     Indication: GASTRIC CANCER
     Dosage: OTHER FREQUENCY:BID FOR 14 DAYS ON AND 7 DAYS OFF.?
     Route: 048
     Dates: start: 20180418

REACTIONS (3)
  - Paraesthesia [None]
  - Skin exfoliation [None]
  - Temperature intolerance [None]

NARRATIVE: CASE EVENT DATE: 20180509
